FAERS Safety Report 6304505-8 (Version None)
Quarter: 2009Q3

REPORT INFORMATION
  Report Type: 
  Country: None (occurrence: None)
  Receive Date: 20090811
  Receipt Date: 20090803
  Transmission Date: 20100115
  Serious: Yes (Death)
  Sender: FDA-Public Use
  Company Number: FR-ROCHE-647719

PATIENT
  Age: 42 Year
  Sex: Female

DRUGS (1)
  1. CAPECITABINE [Suspect]
     Indication: BREAST CANCER METASTATIC
     Dosage: DOSE: 4000 MGPER DAY, DAY 1-14, DAY1 =DAY 28
     Route: 048

REACTIONS (4)
  - ALOPECIA [None]
  - MUCOSAL INFLAMMATION [None]
  - RESPIRATORY FAILURE [None]
  - SEPTIC SHOCK [None]
